FAERS Safety Report 13833067 (Version 3)
Quarter: 2017Q3

REPORT INFORMATION
  Report Type: Spontaneous
  Country: US (occurrence: US)
  Receive Date: 20170803
  Receipt Date: 20170918
  Transmission Date: 20171127
  Serious: No
  Sender: FDA-Public Use
  Company Number: US-PFIZER INC-2017332408

PATIENT
  Age: 75 Year
  Sex: Female
  Weight: 54 kg

DRUGS (2)
  1. XALATAN [Suspect]
     Active Substance: LATANOPROST
     Dosage: 2 GTT, UNK (1 DROP IN EACH EYE AT NIGHT) (1 DROP IN EACH EYE AT BED TIME)
     Dates: start: 20170620, end: 20170901
  2. XALATAN [Suspect]
     Active Substance: LATANOPROST
     Indication: INTRAOCULAR PRESSURE INCREASED
     Dosage: 2 GTT, UNK (1 DROP IN EACH EYE AT NIGHT) (1 DROP IN EACH EYE AT BED TIME)
     Dates: start: 20170620, end: 20170901

REACTIONS (4)
  - Acne [Not Recovered/Not Resolved]
  - Rash pruritic [Not Recovered/Not Resolved]
  - Condition aggravated [Not Recovered/Not Resolved]
  - Rash macular [Not Recovered/Not Resolved]

NARRATIVE: CASE EVENT DATE: 201707
